FAERS Safety Report 9954741 (Version 1)
Quarter: 2014Q1

REPORT INFORMATION
  Report Type: Report from Study
  Country: US (occurrence: US)
  Receive Date: 20140304
  Receipt Date: 20140304
  Transmission Date: 20141002
  Serious: No
  Sender: FDA-Public Use
  Company Number: US-ABBVIE-13P-163-1083713-00

PATIENT
  Age: 79 Year
  Sex: Female

DRUGS (7)
  1. HUMIRA [Suspect]
     Indication: PSORIASIS
     Dates: start: 20130419
  2. HUMIRA [Suspect]
     Dates: start: 20130426
  3. NEXIUM [Concomitant]
     Indication: GASTROOESOPHAGEAL REFLUX DISEASE
  4. EVISTA [Concomitant]
     Indication: BREAST CANCER
  5. LYRICA [Concomitant]
     Indication: PAIN
  6. CELEBREX [Concomitant]
     Indication: ARTHRALGIA
  7. MULTIVITAMIN SUPPLEMENT [Concomitant]
     Indication: SUPPLEMENTATION THERAPY

REACTIONS (4)
  - Injection site erythema [Not Recovered/Not Resolved]
  - Injection site urticaria [Not Recovered/Not Resolved]
  - Injection site warmth [Not Recovered/Not Resolved]
  - Injection site pain [Not Recovered/Not Resolved]
